FAERS Safety Report 8447911 (Version 7)
Quarter: 2012Q4

REPORT INFORMATION
  Report Type: 
  Country: US (occurrence: US)
  Receive Date: 20120308
  Receipt Date: 20121025
  Transmission Date: 20130627
  Serious: Yes (Hospitalization, Other)
  Sender: FDA-Public Use
  Company Number: US-009507513-1203USA00778

PATIENT

DRUGS (8)
  1. FOSAMAX [Suspect]
     Indication: OSTEOPENIA
     Dosage: 70 mg, UNK
     Route: 048
     Dates: start: 20040106, end: 200901
  2. FOSAMAX [Suspect]
     Indication: MENOPAUSE
     Dosage: 35 mg, UNK
     Route: 048
     Dates: start: 20040417, end: 20040919
  3. FOSAMAX [Suspect]
     Indication: OSTEOPOROSIS
  4. ALENDRONATE TEVA [Suspect]
     Dosage: 70 mg, UNK
     Dates: start: 20080728
  5. OS-CAL (CALCIUM CARBONATE) [Concomitant]
     Dosage: UNK UNK, bid
     Route: 048
     Dates: start: 2002
  6. CALCIUM (UNSPECIFIED) [Concomitant]
     Indication: OSTEOPENIA
  7. VITAMIN D (UNSPECIFIED) [Concomitant]
     Indication: OSTEOPENIA
  8. ESTROGENS (UNSPECIFIED) [Concomitant]
     Dosage: UNK
     Dates: start: 2004, end: 2010

REACTIONS (14)
  - Femur fracture [Unknown]
  - Device failure [Unknown]
  - Tooth disorder [Unknown]
  - Vitamin D deficiency [Unknown]
  - Calcium deficiency [Unknown]
  - Depression [Unknown]
  - Hormone level abnormal [Unknown]
  - Gait disturbance [Unknown]
  - Gait disturbance [Unknown]
  - Abscess [Unknown]
  - Fall [Unknown]
  - Contusion [Unknown]
  - Arthralgia [Unknown]
  - Gastrointestinal haemorrhage [Recovering/Resolving]
